FAERS Safety Report 15554892 (Version 2)
Quarter: 2019Q1

REPORT INFORMATION
  Report Type: Report from Study
  Country: US (occurrence: US)
  Receive Date: 20181026
  Receipt Date: 20190212
  Transmission Date: 20190417
  Serious: Yes (Other)
  Sender: FDA-Public Use
  Company Number: PHEH2018US044978

PATIENT
  Age: 17 Year
  Sex: Female

DRUGS (1)
  1. AFINITOR [Suspect]
     Active Substance: EVEROLIMUS
     Indication: ASTROCYTOMA, LOW GRADE
     Dosage: 5 MG, QD
     Route: 048
     Dates: start: 20120111

REACTIONS (5)
  - Fall [Unknown]
  - Balance disorder [Unknown]
  - Anxiety [Unknown]
  - Tibia fracture [Unknown]
  - Depression [Unknown]

NARRATIVE: CASE EVENT DATE: 20190125
